FAERS Safety Report 7409801-9 (Version None)
Quarter: 2011Q2

REPORT INFORMATION
  Report Type: 
  Country: None (occurrence: None)
  Receive Date: 20110412
  Receipt Date: 20110405
  Transmission Date: 20111010
  Serious: Yes (Hospitalization, Other)
  Sender: FDA-Public Use
  Company Number: US-ABBOTT-11P-163-0717176-00

PATIENT
  Age: 39 Year
  Sex: Female

DRUGS (2)
  1. HUMIRA [Suspect]
     Indication: RHEUMATOID ARTHRITIS
     Dates: start: 20070101, end: 20100701
  2. LEFLUNOMIDE [Concomitant]
     Indication: RHEUMATOID ARTHRITIS
     Dates: end: 20100701

REACTIONS (9)
  - PERINEPHRIC ABSCESS [None]
  - NEPHROLITHIASIS [None]
  - PANCREATITIS [None]
  - URETHRAL DISORDER [None]
  - DUODENAL STENOSIS [None]
  - FLANK PAIN [None]
  - INFECTION [None]
  - STAG HORN CALCULUS [None]
  - LIPASE INCREASED [None]
